FAERS Safety Report 20892220 (Version 2)
Quarter: 2022Q2

REPORT INFORMATION
  Report Type: Report from Study
  Country: US (occurrence: US)
  Receive Date: 20220530
  Receipt Date: 20220602
  Transmission Date: 20220721
  Serious: Yes (Other)
  Sender: FDA-Public Use
  Company Number: US-JAZZ-2019-US-008665

PATIENT
  Sex: Female

DRUGS (48)
  1. XYREM [Suspect]
     Active Substance: SODIUM OXYBATE
     Indication: Narcolepsy
     Dosage: 2.25 G, BID
     Route: 048
     Dates: start: 200912, end: 200912
  2. XYREM [Suspect]
     Active Substance: SODIUM OXYBATE
     Dosage: DOSE ADJUSTMENT
     Route: 048
     Dates: start: 200912, end: 201007
  3. XYREM [Suspect]
     Active Substance: SODIUM OXYBATE
     Dosage: 4.5 G, TID
     Route: 048
     Dates: start: 201007
  4. BENZONATATE [Concomitant]
     Active Substance: BENZONATATE
  5. ZITHROMAX [Concomitant]
     Active Substance: AZITHROMYCIN DIHYDRATE
  6. NORCO [Concomitant]
     Active Substance: ACETAMINOPHEN\HYDROCODONE BITARTRATE
  7. CALCIUM ANTACID [Concomitant]
     Active Substance: CALCIUM CARBONATE
     Dosage: 0000
     Dates: start: 20170213
  8. COPPER [Concomitant]
     Active Substance: COPPER
     Dosage: 0000
     Dates: start: 20170213
  9. ACETAMINOPHEN\HYDROCODONE [Concomitant]
     Active Substance: ACETAMINOPHEN\HYDROCODONE
  10. MAGNESIUM OXIDE [Concomitant]
     Active Substance: MAGNESIUM OXIDE
  11. BACLOFEN [Concomitant]
     Active Substance: BACLOFEN
  12. CYANOCOBALAMIN [Concomitant]
     Active Substance: CYANOCOBALAMIN
  13. METHYLPHENIDATE [Concomitant]
     Active Substance: METHYLPHENIDATE
  14. ERGOCALCIFEROL [Concomitant]
     Active Substance: ERGOCALCIFEROL
  15. BACTRIM [Concomitant]
     Active Substance: SULFAMETHOXAZOLE\TRIMETHOPRIM
  16. CYMBALTA [Concomitant]
     Active Substance: DULOXETINE HYDROCHLORIDE
     Dosage: 0000
     Dates: start: 20151022
  17. CYPROHEPTADINE [Concomitant]
     Active Substance: CYPROHEPTADINE
  18. DIAZEPAM [Concomitant]
     Active Substance: DIAZEPAM
     Dosage: 0000
     Dates: start: 20151022
  19. DIGOXIN [Concomitant]
     Active Substance: DIGOXIN
  20. CYCLOBENZAPRINE HYDROCHLORIDE [Concomitant]
     Active Substance: CYCLOBENZAPRINE HYDROCHLORIDE
  21. LORATADINE [Concomitant]
     Active Substance: LORATADINE
     Dosage: 0010
     Dates: start: 20151022
  22. LYRICA [Concomitant]
     Active Substance: PREGABALIN
     Dosage: 0010
     Dates: start: 20151022
  23. METOPROLOL TARTRATE [Concomitant]
     Active Substance: METOPROLOL TARTRATE
     Dosage: 0000
     Dates: start: 20151022
  24. SYNTHROID [Concomitant]
     Active Substance: LEVOTHYROXINE SODIUM
  25. TOPAMAX [Concomitant]
     Active Substance: TOPIRAMATE
  26. TRAMADOL HYDROCHLORIDE [Concomitant]
     Active Substance: TRAMADOL HYDROCHLORIDE
  27. WELLBUTRIN [Concomitant]
     Active Substance: BUPROPION HYDROCHLORIDE
  28. METHOCARBAMOL [Concomitant]
     Active Substance: METHOCARBAMOL
  29. AMBIEN [Concomitant]
     Active Substance: ZOLPIDEM TARTRATE
     Dosage: 0000
     Dates: start: 20201029
  30. FERROUS SULFATE [Concomitant]
     Active Substance: FERROUS SULFATE
  31. MODAFINIL [Concomitant]
     Active Substance: MODAFINIL
  32. ZANAFLEX [Concomitant]
     Active Substance: TIZANIDINE HYDROCHLORIDE
  33. BUPROPION HYDROCHLORIDE [Concomitant]
     Active Substance: BUPROPION HYDROCHLORIDE
  34. CLINDAMYCIN [Concomitant]
     Active Substance: CLINDAMYCIN
  35. FUROSEMIDE [Concomitant]
     Active Substance: FUROSEMIDE
  36. KETOROLAC [Concomitant]
     Active Substance: KETOROLAC TROMETHAMINE
  37. METOPROLOL SUCCINATE [Concomitant]
     Active Substance: METOPROLOL SUCCINATE
  38. MIRTAZAPINE [Concomitant]
     Active Substance: MIRTAZAPINE
  39. NITROFURANTOIN [Concomitant]
     Active Substance: NITROFURANTOIN
  40. ONDANSETRON HCL [Concomitant]
     Active Substance: ONDANSETRON HYDROCHLORIDE
  41. REMERON [Concomitant]
     Active Substance: MIRTAZAPINE
  42. RITALIN [Concomitant]
     Active Substance: METHYLPHENIDATE HYDROCHLORIDE
  43. VITAMIN B12 [Concomitant]
     Active Substance: CYANOCOBALAMIN
  44. VITAMIN D3 [Concomitant]
     Active Substance: CHOLECALCIFEROL
  45. ULTRAM [Concomitant]
     Active Substance: TRAMADOL HYDROCHLORIDE
     Indication: Product used for unknown indication
     Dosage: UNK
     Dates: start: 20151022
  46. WAKIX [Concomitant]
     Active Substance: PITOLISANT HYDROCHLORIDE
     Indication: Product used for unknown indication
     Dosage: UNK
  47. DOXYCYCLINE HYCLATE [Concomitant]
     Active Substance: DOXYCYCLINE HYCLATE
     Indication: Product used for unknown indication
     Dosage: UNK
     Dates: start: 20210128
  48. PANTOPRAZOLE SODIUM [Concomitant]
     Active Substance: PANTOPRAZOLE SODIUM
     Indication: Product used for unknown indication
     Dosage: UNK
     Dates: start: 20220209

REACTIONS (7)
  - Tendon rupture [Not Recovered/Not Resolved]
  - Dental care [Unknown]
  - Stress [Unknown]
  - Emotional distress [Unknown]
  - Pain [Unknown]
  - Drug ineffective [Unknown]
  - Bone density decreased [Unknown]
